FAERS Safety Report 24677301 (Version 10)
Quarter: 2025Q2

REPORT INFORMATION
  Report Type: Spontaneous
  Country: US (occurrence: US)
  Receive Date: 20241129
  Receipt Date: 20250423
  Transmission Date: 20250717
  Serious: Yes (Hospitalization)
  Sender: ELI LILLY AND COMPANY
  Company Number: US-ELI_LILLY_AND_COMPANY-US202411002560

PATIENT
  Age: 56 Year
  Sex: Male

DRUGS (16)
  1. ADCIRCA [Suspect]
     Active Substance: TADALAFIL
     Indication: Product used for unknown indication
     Route: 065
  2. TYVASO [Suspect]
     Active Substance: TREPROSTINIL
     Indication: Pulmonary arterial hypertension
     Dosage: 3 BREATHS, QID
     Route: 055
     Dates: start: 202410
  3. TYVASO [Suspect]
     Active Substance: TREPROSTINIL
     Dosage: 3 BREATHS, QID, INCREASE BY 1 BREATH
     Route: 055
     Dates: start: 2024
  4. TYVASO [Suspect]
     Active Substance: TREPROSTINIL
     Dosage: 5 BREATHS QID
     Route: 055
     Dates: start: 202410
  5. TYVASO [Suspect]
     Active Substance: TREPROSTINIL
     Dosage: 9 BREATHS, QID
     Route: 055
     Dates: start: 202410
  6. TYVASO [Suspect]
     Active Substance: TREPROSTINIL
     Dosage: 7 BREATHS QID
     Route: 055
  7. TYVASO [Suspect]
     Active Substance: TREPROSTINIL
     Dosage: 12 BREATHS QID
     Route: 055
     Dates: start: 202410
  8. TYVASO [Suspect]
     Active Substance: TREPROSTINIL
     Dosage: 1-3 BREATHS, WEEKLY (1/W)
     Route: 055
     Dates: start: 202410
  9. TYVASO [Suspect]
     Active Substance: TREPROSTINIL
     Dosage: 3 BREATHS, QID
     Route: 055
     Dates: start: 202410
  10. REMODULIN [Suspect]
     Active Substance: TREPROSTINIL
     Indication: Pulmonary arterial hypertension
     Route: 042
     Dates: start: 20250310
  11. REMODULIN [Suspect]
     Active Substance: TREPROSTINIL
     Route: 042
     Dates: start: 20250313
  12. REMODULIN [Suspect]
     Active Substance: TREPROSTINIL
     Route: 042
  13. REMODULIN [Suspect]
     Active Substance: TREPROSTINIL
     Route: 042
  14. REMODULIN [Suspect]
     Active Substance: TREPROSTINIL
     Route: 042
  15. REMODULIN [Suspect]
     Active Substance: TREPROSTINIL
     Route: 042
     Dates: start: 202503
  16. REMODULIN [Suspect]
     Active Substance: TREPROSTINIL
     Route: 042
     Dates: start: 202503

REACTIONS (18)
  - Pneumonia [Unknown]
  - Dyspnoea exertional [Unknown]
  - Weight decreased [Unknown]
  - Dermatitis allergic [Unknown]
  - Productive cough [Unknown]
  - Cough [Unknown]
  - Diarrhoea [Recovering/Resolving]
  - Headache [Recovered/Resolved]
  - Fatigue [Recovering/Resolving]
  - Headache [Not Recovered/Not Resolved]
  - Dizziness [Unknown]
  - Peripheral swelling [Unknown]
  - Headache [Unknown]
  - Fatigue [Unknown]
  - Nausea [Recovering/Resolving]
  - Headache [Recovering/Resolving]
  - Vomiting [Recovering/Resolving]
  - Headache [Unknown]

NARRATIVE: CASE EVENT DATE: 20250313
